FAERS Safety Report 9774200 (Version 1)
Quarter: 2013Q4

REPORT INFORMATION
  Report Type: Spontaneous
  Country: US (occurrence: US)
  Receive Date: 20131220
  Receipt Date: 20131220
  Transmission Date: 20140711
  Serious: No
  Sender: FDA-Public Use
  Company Number: US-009507513-1311USA010950

PATIENT
  Age: 71 Year
  Sex: Female

DRUGS (3)
  1. LISINOPRIL [Suspect]
     Indication: HYPERTENSION
     Dosage: 10 MG, UNK
     Route: 048
  2. CYCLOSPORINE [Concomitant]
  3. AZATHIOPRINE [Concomitant]

REACTIONS (1)
  - Cough [Unknown]
